FAERS Safety Report 5876430-8 (Version None)
Quarter: 2008Q3

REPORT INFORMATION
  Report Type: 
  Country: None (occurrence: None)
  Receive Date: 20080908
  Receipt Date: 20080908
  Transmission Date: 20090109
  Serious: No
  Sender: FDA-Public Use
  Company Number: None

PATIENT
  Sex: Female
  Weight: 75.2971 kg

DRUGS (1)
  1. XYREM [Suspect]
     Indication: NARCOLEPSY
     Dosage: 9 ML 3-4 HOURS AT BED PO
     Route: 048
     Dates: start: 20060717, end: 20070404

REACTIONS (1)
  - DIABETES MELLITUS [None]
